FAERS Safety Report 21401875 (Version 1)
Quarter: 2022Q4

REPORT INFORMATION
  Report Type: Report from Study
  Country: US (occurrence: US)
  Receive Date: 20221003
  Receipt Date: 20221003
  Transmission Date: 20230113
  Serious: Yes (Hospitalization, Other)
  Sender: FDA-Public Use
  Company Number: US-GILEAD-2022-0599542

PATIENT
  Sex: Male

DRUGS (26)
  1. AZTREONAM LYSINE [Suspect]
     Active Substance: AZTREONAM LYSINE
     Indication: Product used for unknown indication
     Dosage: UNK
     Route: 065
  2. TOBRAMYCIN [Concomitant]
     Active Substance: TOBRAMYCIN
  3. ALBUTEROL [Concomitant]
     Active Substance: ALBUTEROL
  4. EPIDIOLEX [Concomitant]
     Active Substance: CANNABIDIOL
  5. SODIUM CHLORIDE [Concomitant]
     Active Substance: SODIUM CHLORIDE
  6. DEPAKOTE [Concomitant]
     Active Substance: DIVALPROEX SODIUM
  7. PULMICORT TURBUHALER [Concomitant]
     Active Substance: BUDESONIDE
  8. PERFOROMIST [Concomitant]
     Active Substance: FORMOTEROL FUMARATE DIHYDRATE
  9. FELBATOL [Concomitant]
     Active Substance: FELBAMATE
  10. CLONAZEPAM [Concomitant]
     Active Substance: CLONAZEPAM
  11. MUPIROCIN [Concomitant]
     Active Substance: MUPIROCIN
  12. NEXIUM [Concomitant]
     Active Substance: ESOMEPRAZOLE MAGNESIUM
  13. MIRALAX [Concomitant]
     Active Substance: POLYETHYLENE GLYCOL 3350
  14. CULTURELLE [Concomitant]
     Active Substance: LACTOBACILLUS RHAMNOSUS
  15. MELATONIN [Concomitant]
     Active Substance: MELATONIN
  16. POTASSIUM CITRATE [Concomitant]
     Active Substance: POTASSIUM CITRATE
  17. IPRATROPIUM BROMIDE [Concomitant]
     Active Substance: IPRATROPIUM BROMIDE
  18. LORATADINE [Concomitant]
     Active Substance: LORATADINE
  19. ATROPINE SULFATE [Concomitant]
     Active Substance: ATROPINE SULFATE
  20. CETIRIZINE HYDROCHLORIDE [Concomitant]
     Active Substance: CETIRIZINE HYDROCHLORIDE
  21. GLYCOPYRROLATE [Concomitant]
     Active Substance: GLYCOPYRROLATE
  22. FELBAMATE [Concomitant]
     Active Substance: FELBAMATE
  23. BUDESONIDE [Concomitant]
     Active Substance: BUDESONIDE
  24. FINTEPLA [Concomitant]
     Active Substance: FENFLURAMINE
  25. COVID-19 VACCINE [Concomitant]
     Dosage: UNK
     Dates: start: 20220917, end: 20220917
  26. FLU [INFLUENZA VACCINE] [Concomitant]
     Dosage: UNK
     Dates: start: 202209, end: 202209

REACTIONS (1)
  - COVID-19 [Unknown]

NARRATIVE: CASE EVENT DATE: 20220101
